FAERS Safety Report 19355784 (Version 4)
Quarter: 2025Q1

REPORT INFORMATION
  Report Type: Spontaneous
  Country: CA (occurrence: CA)
  Receive Date: 20210601
  Receipt Date: 20250312
  Transmission Date: 20250409
  Serious: Yes (Other)
  Sender: CELLTRION
  Company Number: CA-CELLTRION INC.-2021CA007149

PATIENT

DRUGS (14)
  1. RITUXIMAB [Suspect]
     Active Substance: RITUXIMAB
     Indication: Rheumatoid arthritis
     Route: 042
  2. RITUXIMAB [Suspect]
     Active Substance: RITUXIMAB
     Route: 042
  3. ACTEMRA [Suspect]
     Active Substance: TOCILIZUMAB
     Indication: Rheumatoid arthritis
     Dosage: 160 MILLIGRAM, 1 EVERY 4 WEEKS
     Route: 042
  4. ACTEMRA [Suspect]
     Active Substance: TOCILIZUMAB
     Indication: Rheumatoid arthritis
     Dosage: 250 MILLIGRAM, 1 EVERY 4 WEEKS
     Route: 042
  5. AMLODIPINE [Concomitant]
     Active Substance: AMLODIPINE BESYLATE
     Indication: Hypertension
     Route: 065
  6. BREO ELLIPTA [Concomitant]
     Active Substance: FLUTICASONE FUROATE\VILANTEROL TRIFENATATE
     Route: 065
  7. CELEBREX [Concomitant]
     Active Substance: CELECOXIB
     Route: 065
  8. GLYCOPYRROLATE [Concomitant]
     Active Substance: GLYCOPYRROLATE
     Route: 065
  9. HYDROXYCHLOROQUINE SULFATE [Concomitant]
     Active Substance: HYDROXYCHLOROQUINE SULFATE
     Route: 065
  10. RISEDRONATE SODIUM [Concomitant]
     Active Substance: RISEDRONATE SODIUM
     Indication: Osteoporosis
     Route: 065
  11. SYNTHROID [Concomitant]
     Active Substance: LEVOTHYROXINE SODIUM
     Route: 065
  12. TELMISARTAN [Concomitant]
     Active Substance: TELMISARTAN
     Indication: Hypertension
     Route: 065
  13. UMECLIDINIUM BROMIDE [Concomitant]
     Active Substance: UMECLIDINIUM BROMIDE
     Route: 065
  14. URSODIOL [Concomitant]
     Active Substance: URSODIOL
     Route: 065

REACTIONS (10)
  - Joint swelling [Unknown]
  - Osteoporosis [Unknown]
  - Muscular weakness [Unknown]
  - Peripheral swelling [Unknown]
  - Rheumatoid arthritis [Unknown]
  - Swelling [Unknown]
  - Weight decreased [Unknown]
  - Arthralgia [Unknown]
  - Therapy non-responder [Unknown]
  - Intentional product use issue [Unknown]
